FAERS Safety Report 25497671 (Version 1)
Quarter: 2025Q3

REPORT INFORMATION
  Report Type: Spontaneous
  Country: JP (occurrence: JP)
  Receive Date: 20250701
  Receipt Date: 20250701
  Transmission Date: 20251020
  Serious: Yes (Hospitalization)
  Sender: ROCHE
  Company Number: JP-CHUGAI-2025020564

PATIENT
  Age: 77 Year
  Sex: Female

DRUGS (1)
  1. TECENTRIQ [Suspect]
     Active Substance: ATEZOLIZUMAB
     Indication: Breast cancer
     Route: 042
     Dates: start: 202305, end: 202309

REACTIONS (5)
  - Pyelonephritis [Unknown]
  - Cholangitis [Unknown]
  - Thyroid disorder [Unknown]
  - Adrenocorticotropic hormone deficiency [Unknown]
  - Fulminant type 1 diabetes mellitus [Unknown]

NARRATIVE: CASE EVENT DATE: 20230901
